FAERS Safety Report 8829350 (Version 2)
Quarter: 2012Q4

REPORT INFORMATION
  Report Type: 
  Country: RO (occurrence: RO)
  Receive Date: 20121008
  Receipt Date: 20121009
  Transmission Date: 20130627
  Serious: Yes (Death)
  Sender: FDA-Public Use
  Company Number: RO-ROCHE-1137858

PATIENT
  Sex: Female

DRUGS (6)
  1. RITUXIMAB [Suspect]
     Indication: NON-HODGKIN^S LYMPHOMA
     Route: 065
  2. CYCLOPHOSPHAMIDE [Suspect]
     Indication: NON-HODGKIN^S LYMPHOMA
  3. DOXORUBICINE [Suspect]
     Indication: NON-HODGKIN^S LYMPHOMA
  4. ETOPOSIDE [Suspect]
     Indication: NON-HODGKIN^S LYMPHOMA
  5. VINCRISTINE [Suspect]
     Indication: NON-HODGKIN^S LYMPHOMA
  6. PREDNISONE [Concomitant]
     Indication: NON-HODGKIN^S LYMPHOMA

REACTIONS (1)
  - Pulmonary embolism [Fatal]
